FAERS Safety Report 22529822 (Version 10)
Quarter: 2023Q4

REPORT INFORMATION
  Report Type: Report from Study
  Country: MX (occurrence: None)
  Receive Date: 20230607
  Receipt Date: 20231010
  Transmission Date: 20240109
  Serious: Yes (Death, Life-Threatening, Hospitalization)
  Sender: FDA-Public Use
  Company Number: MX-ROCHE-3264595

PATIENT
  Age: 76 Year
  Sex: Female
  Weight: 52.4 kg

DRUGS (34)
  1. TIRAGOLUMAB [Suspect]
     Active Substance: TIRAGOLUMAB
     Indication: Non-small cell lung cancer metastatic
     Dosage: START DATE OF MOST RECENT DOSE OF STUDY DRUG PRIOR TO AE WAS 22/DEC/2022 AND 18/MAY/2023?START DATE
     Route: 042
     Dates: start: 20221222
  2. ATEZOLIZUMAB [Suspect]
     Active Substance: ATEZOLIZUMAB
     Indication: Non-small cell lung cancer metastatic
     Dosage: START DATE OF MOST RECENT DOSE OF STUDY DRUG PRIOR TO AE WAS 22/DEC/2022 AND SAE WAS 18/MAY/2023.
     Route: 041
     Dates: start: 20221222
  3. CARBOPLATIN [Suspect]
     Active Substance: CARBOPLATIN
     Indication: Non-small cell lung cancer metastatic
     Dosage: DOSE LAST STUDY DRUG ADMIN PRIOR AE/SAE WAS 424 MG?START DATE OF MOST RECENT DOSE OF STUDY DRUG PRIO
     Route: 042
     Dates: start: 20221222
  4. PEMETREXED [Suspect]
     Active Substance: PEMETREXED
     Indication: Non-small cell lung cancer metastatic
     Dosage: DOSE LAST STUDY DRUG ADMIN PRIOR AE/SAE WAS 815 MG?START DATE OF MOST RECENT DOSE OF STUDY DRUG PRIO
     Route: 042
     Dates: start: 20221222
  5. IBANDRONIC ACID [Concomitant]
     Active Substance: IBANDRONIC ACID
     Indication: Osteoarthritis
     Dosage: YES
     Dates: start: 202207
  6. CHOLECALCIFEROL [Concomitant]
     Active Substance: CHOLECALCIFEROL
     Indication: Osteoarthritis
     Dates: start: 2019
  7. METOPROLOL [Concomitant]
     Active Substance: METOPROLOL
     Indication: Atrial fibrillation
     Dates: start: 2002, end: 20230531
  8. RIVAROXABAN [Concomitant]
     Active Substance: RIVAROXABAN
     Indication: Atrial fibrillation
     Dates: start: 2012, end: 20230523
  9. LEVOTHYROXINE [Concomitant]
     Active Substance: LEVOTHYROXINE
     Indication: Hypothyroidism
     Dates: start: 2015
  10. DIGOXIN [Concomitant]
     Active Substance: DIGOXIN
     Indication: Atrial fibrillation
     Dates: start: 2002, end: 20230523
  11. ALDACTONE [Concomitant]
     Active Substance: SPIRONOLACTONE
     Indication: Atrial fibrillation
     Dates: start: 2015, end: 20230523
  12. CALCIUM CARBONATE [Concomitant]
     Active Substance: CALCIUM CARBONATE
     Indication: Osteoarthritis
     Dates: start: 2019
  13. VITAMIN C [Concomitant]
     Active Substance: ASCORBIC ACID
     Indication: Prophylaxis
     Dates: start: 2019
  14. EZETIMIBE\ROSUVASTATIN [Concomitant]
     Active Substance: EZETIMIBE\ROSUVASTATIN
     Indication: Dyslipidaemia
     Dates: start: 202206
  15. VITAMIN B COMPLEX [Concomitant]
     Active Substance: CYANOCOBALAMIN\DEXPANTHENOL\NIACINAMIDE\PYRIDOXINE HYDROCHLORIDE\RIBOFLAVIN 5^-PHOSPHATE SODIUM\THIA
     Indication: Prophylaxis
     Dates: start: 20221221, end: 20221221
  16. FOLIC ACID [Concomitant]
     Active Substance: FOLIC ACID
     Indication: Prophylaxis
     Dosage: GIVEN FOR PROPHYLAXIS IS YES ;ONGOING: YES
     Dates: start: 20221221
  17. BETAMETHASONE [Concomitant]
     Active Substance: BETAMETHASONE
     Indication: Rash
     Route: 061
     Dates: start: 20230110, end: 20230207
  18. LORATADINE [Concomitant]
     Active Substance: LORATADINE
     Indication: Rash
     Route: 048
     Dates: start: 20230110, end: 20230207
  19. SITAGLIPTIN [Concomitant]
     Active Substance: SITAGLIPTIN
     Indication: Glucose tolerance impaired
     Dates: start: 2018
  20. OMEPRAZOLE [Concomitant]
     Active Substance: OMEPRAZOLE
     Indication: Prophylaxis
     Dates: start: 20230110
  21. CHLORAMPHENICOL [Concomitant]
     Active Substance: CHLORAMPHENICOL
     Indication: Conjunctivitis
     Dates: start: 20230502, end: 20230517
  22. URSODIOL [Concomitant]
     Active Substance: URSODIOL
     Dates: start: 20230511
  23. TRIMEBUTINE [Concomitant]
     Active Substance: TRIMEBUTINE
     Dates: start: 20230511
  24. SIMETHICONE (DIMETHICONE) [Concomitant]
     Active Substance: DIMETHICONE
     Dates: start: 20230511
  25. BROMAZEPAM [Concomitant]
     Active Substance: BROMAZEPAM
     Indication: Insomnia
     Dates: start: 20221213
  26. SPIRONOLACTONE [Concomitant]
     Active Substance: SPIRONOLACTONE
     Indication: Cardiac monitoring
     Dates: start: 20230530, end: 20230606
  27. FUROSEMIDE [Concomitant]
     Active Substance: FUROSEMIDE
     Indication: Cardiac monitoring
     Dates: start: 20230530, end: 20230606
  28. BISOPROLOL [Concomitant]
     Active Substance: BISOPROLOL\BISOPROLOL FUMARATE
     Indication: Cardiac monitoring
     Dates: start: 20230530, end: 20230606
  29. MORPHINE [Concomitant]
     Active Substance: MORPHINE
     Indication: Respiratory distress
     Dates: start: 20230530, end: 20230606
  30. TRANEXAMIC ACID [Concomitant]
     Active Substance: TRANEXAMIC ACID
     Indication: International normalised ratio increased
     Dates: start: 20230530, end: 20230606
  31. DILTIAZEM [Concomitant]
     Active Substance: DILTIAZEM
     Dates: start: 20230530, end: 20230606
  32. LACTULOSE [Concomitant]
     Active Substance: LACTULOSE
     Indication: Constipation
     Dates: start: 20230530
  33. SENNOSIDES A AND B [Concomitant]
     Active Substance: SENNOSIDES A AND B
     Indication: Constipation
     Dates: start: 20230530
  34. METOCLOPRAMIDE [Concomitant]
     Active Substance: METOCLOPRAMIDE
     Indication: Constipation
     Dates: start: 20230530

REACTIONS (3)
  - Haematotoxicity [Fatal]
  - Fatigue [Not Recovered/Not Resolved]
  - Pneumonitis [Recovered/Resolved]

NARRATIVE: CASE EVENT DATE: 20230102
